FAERS Safety Report 6409330-5 (Version None)
Quarter: 2009Q4

REPORT INFORMATION
  Report Type: 
  Country: None (occurrence: None)
  Receive Date: 20091019
  Receipt Date: 20091019
  Transmission Date: 20100525
  Serious: Yes (Other)
  Sender: FDA-Public Use
  Company Number: None

PATIENT
  Sex: Male
  Weight: 129.7287 kg

DRUGS (2)
  1. VALPROIC ACID [Suspect]
     Dosage: 1000 AM; 1500 PM ORAL
     Route: 048
  2. KEPPRA [Concomitant]

REACTIONS (3)
  - ANTICONVULSANT DRUG LEVEL INCREASED [None]
  - CONVULSION [None]
  - SOMNOLENCE [None]
